FAERS Safety Report 24860181 (Version 2)
Quarter: 2025Q2

REPORT INFORMATION
  Report Type: Spontaneous
  Country: US (occurrence: US)
  Receive Date: 20250120
  Receipt Date: 20250428
  Transmission Date: 20250717
  Serious: No
  Sender: PRINSTON PHARMACEUTICAL
  Company Number: US-PRINSTON PHARMACEUTICAL INC.-2025PRN00005

PATIENT
  Sex: Male
  Weight: 80.726 kg

DRUGS (2)
  1. NEBIVOLOL [Suspect]
     Active Substance: NEBIVOLOL
     Indication: Hypertension
     Dosage: 5 MG, 1X/DAY
     Route: 048
  2. FUROSEMIDE (DIURETIC) [Concomitant]

REACTIONS (1)
  - Cough [Not Recovered/Not Resolved]
